FAERS Safety Report 5139638-5 (Version None)
Quarter: 2006Q4

REPORT INFORMATION
  Report Type: 
  Country: None (occurrence: None)
  Receive Date: 20061024
  Receipt Date: 20061011
  Transmission Date: 20070319
  Serious: Yes (Other)
  Sender: FDA-Public Use
  Company Number: 2006106514

PATIENT
  Age: 71 Year
  Sex: Male

DRUGS (2)
  1. PREDNISOLONE [Suspect]
     Indication: PEMPHIGUS
     Dosage: 40 MG (1 IN 1 D) ORAL
     Route: 048
  2. AZATHIOPRINE [Suspect]
     Indication: PEMPHIGUS
     Dosage: 150 MG (50 MG, 3 IN 1 D) ORAL
     Route: 048

REACTIONS (10)
  - CORNEAL DISORDER [None]
  - CORNEAL EROSION [None]
  - CORNEAL OEDEMA [None]
  - EYE DISORDER [None]
  - EYE INFLAMMATION [None]
  - HYPOPYON [None]
  - IMMUNE SYSTEM DISORDER [None]
  - KERATITIS HERPETIC [None]
  - TRANSPLANT [None]
  - VISUAL ACUITY REDUCED [None]
